FAERS Safety Report 9971920 (Version 1)
Quarter: 2014Q1

REPORT INFORMATION
  Report Type: Spontaneous
  Country: CN (occurrence: None)
  Receive Date: 20140304
  Receipt Date: 20140304
  Transmission Date: 20141002
  Serious: Yes (Hospitalization)
  Sender: FDA-Public Use
  Company Number: 2014P1001670

PATIENT
  Age: 52 Year
  Sex: Female

DRUGS (1)
  1. AMIODARONE [Suspect]
     Indication: ATRIAL FIBRILLATION
     Route: 042

REACTIONS (4)
  - Hyperthyroidism [None]
  - Hyperthyroidism [None]
  - Vomiting [None]
  - Oropharyngeal pain [None]
